FAERS Safety Report 24116974 (Version 1)
Quarter: 2024Q3

REPORT INFORMATION
  Report Type: Spontaneous
  Country: US (occurrence: US)
  Receive Date: 20240722
  Receipt Date: 20240722
  Transmission Date: 20241017
  Serious: No
  Sender: ROCHE
  Company Number: None

PATIENT

DRUGS (1)
  1. ACTEMRA ACTPEN [Suspect]
     Active Substance: TOCILIZUMAB
     Indication: Product used for unknown indication
     Dosage: ONGOING: YES
     Route: 058

REACTIONS (6)
  - No adverse event [Unknown]
  - Device defective [Unknown]
  - Accidental exposure to product [Unknown]
  - Device malfunction [Unknown]
  - Product complaint [Unknown]
  - Wrong technique in product usage process [Unknown]
